FAERS Safety Report 23080550 (Version 1)
Quarter: 2023Q4

REPORT INFORMATION
  Report Type: Report from Study
  Country: US (occurrence: US)
  Receive Date: 20231018
  Receipt Date: 20231018
  Transmission Date: 20240110
  Serious: Yes (Hospitalization)
  Sender: FDA-Public Use
  Company Number: US-BAUSCH-BL-2020-010540

PATIENT
  Age: 76 Year
  Sex: Male

DRUGS (4)
  1. SILIQ [Suspect]
     Active Substance: BRODALUMAB
     Indication: Psoriasis
     Dosage: 210 MG AT WEEKS 0, 1, AND 2; STARTED FOR OVER 1 YEAR
     Route: 058
  2. SILIQ [Suspect]
     Active Substance: BRODALUMAB
     Dosage: 210 MG EVERY 2 WEEKS
     Route: 058
     Dates: end: 2020
  3. SILIQ [Suspect]
     Active Substance: BRODALUMAB
     Dosage: RESTARTED ABOUT 2 MONTHS AGAIN PRIOR TO DATE OF FOLLOW UP REPORT
     Route: 057
     Dates: start: 2020
  4. SILIQ [Suspect]
     Active Substance: BRODALUMAB
     Dosage: TAKING SHOTS EVERY 3 AND HALF WEEKS OR EVERY 4 WEEKS INSTEAD OF 2
     Route: 065

REACTIONS (8)
  - Knee arthroplasty [Unknown]
  - Psoriasis [Not Recovered/Not Resolved]
  - Intentional product use issue [Unknown]
  - Insurance issue [Unknown]
  - Incorrect route of product administration [Unknown]
  - Product supply issue [Unknown]
  - Inappropriate schedule of product administration [Unknown]
  - Product use issue [Unknown]

NARRATIVE: CASE EVENT DATE: 20230913
